FAERS Safety Report 18144201 (Version 1)
Quarter: 2020Q3

REPORT INFORMATION
  Report Type: Spontaneous
  Country: US (occurrence: US)
  Receive Date: 20200812
  Receipt Date: 20200812
  Transmission Date: 20201103
  Serious: Yes (Other)
  Sender: FDA-Public Use
  Company Number: None

PATIENT
  Age: 52 Year
  Sex: Male
  Weight: 111.6 kg

DRUGS (12)
  1. RILPIVIRINE [Concomitant]
     Active Substance: RILPIVIRINE
     Dates: start: 20200705, end: 20200721
  2. PREZCOBIX [Concomitant]
     Active Substance: COBICISTAT\DARUNAVIR ETHANOLATE
     Dates: start: 20200705, end: 20200722
  3. DECADRON [Concomitant]
     Active Substance: DEXAMETHASONE
     Dates: start: 20200705, end: 20200714
  4. ZINC SULFATE. [Concomitant]
     Active Substance: ZINC SULFATE
     Dates: start: 20200705, end: 20200722
  5. ECULIZUMAB [Concomitant]
     Active Substance: ECULIZUMAB
     Dates: start: 20200708, end: 20200708
  6. DOLUTEGRAVIR [Concomitant]
     Active Substance: DOLUTEGRAVIR
     Dates: start: 20200705, end: 20200722
  7. SINGULAIR [Concomitant]
     Active Substance: MONTELUKAST SODIUM
     Dates: start: 20200705, end: 20200722
  8. CHOLECALCIFEROL [Concomitant]
     Active Substance: CHOLECALCIFEROL
     Dates: start: 20200705, end: 20200722
  9. EUA REMDESIVIR [Suspect]
     Active Substance: REMDESIVIR
     Indication: COVID-19
     Route: 042
     Dates: start: 20200705, end: 20200714
  10. ECULIZUMAB [Concomitant]
     Active Substance: ECULIZUMAB
     Dates: start: 20200710, end: 20200710
  11. ENOXAPARIN [Concomitant]
     Active Substance: ENOXAPARIN
     Dates: start: 20200705, end: 20200722
  12. ECULIZUMAB [Concomitant]
     Active Substance: ECULIZUMAB
     Dates: start: 20200715, end: 20200715

REACTIONS (2)
  - Alanine aminotransferase increased [None]
  - Aspartate aminotransferase increased [None]

NARRATIVE: CASE EVENT DATE: 20200709
